FAERS Safety Report 20847335 (Version 1)
Quarter: 2022Q2

REPORT INFORMATION
  Report Type: Spontaneous
  Country: US (occurrence: US)
  Receive Date: 20220519
  Receipt Date: 20220519
  Transmission Date: 20220721
  Serious: Yes (Other)
  Sender: FDA-Public Use
  Company Number: US-SA-SAC20220516000603

PATIENT

DRUGS (1)
  1. GOLD BOND MEDICATED ORIGINAL STRENGTH BODY [Suspect]
     Active Substance: MENTHOL
     Indication: Product used for unknown indication
     Dosage: UNK

REACTIONS (1)
  - Mesothelioma [Unknown]

NARRATIVE: CASE EVENT DATE: 20211122
